FAERS Safety Report 19577150 (Version 1)
Quarter: 2021Q3

REPORT INFORMATION
  Report Type: Report from Study
  Country: US (occurrence: US)
  Receive Date: 20210719
  Receipt Date: 20210719
  Transmission Date: 20211014
  Serious: Yes (Hospitalization)
  Sender: FDA-Public Use
  Company Number: US-TAKEDA-US201906317

PATIENT
  Sex: Male

DRUGS (1)
  1. CUVITRU [Suspect]
     Active Substance: HUMAN IMMUNOGLOBULIN G
     Indication: PRIMARY IMMUNODEFICIENCY SYNDROME
     Dosage: 24 GRAM, Q2WEEKS
     Route: 065

REACTIONS (5)
  - Neck injury [Unknown]
  - Headache [Recovered/Resolved]
  - Chromaturia [Recovered/Resolved]
  - Road traffic accident [Unknown]
  - Back injury [Unknown]
